FAERS Safety Report 17524027 (Version 2)
Quarter: 2020Q1

REPORT INFORMATION
  Report Type: Spontaneous
  Country: JP (occurrence: JP)
  Receive Date: 20200311
  Receipt Date: 20200313
  Transmission Date: 20200409
  Serious: Yes (Other)
  Sender: FDA-Public Use
  Company Number: JP-ROCHE-2565416

PATIENT
  Age: 8 Month
  Sex: Female
  Weight: 4.83 kg

DRUGS (2)
  1. AVASTIN [Suspect]
     Active Substance: BEVACIZUMAB
     Indication: DIENCEPHALIC SYNDROME OF INFANCY
     Dosage: DOSAGE IS UNCERTAIN.
     Route: 065
  2. VINBLASTINE [Concomitant]
     Active Substance: VINBLASTINE

REACTIONS (3)
  - Intentional product use issue [Unknown]
  - Off label use [Unknown]
  - Hydrocephalus [Unknown]
